FAERS Safety Report 7103018-3 (Version None)
Quarter: 2010Q4

REPORT INFORMATION
  Report Type: 
  Country: None (occurrence: None)
  Receive Date: 20101115
  Receipt Date: 20101103
  Transmission Date: 20110411
  Serious: Yes (Hospitalization, Other)
  Sender: FDA-Public Use
  Company Number: US-JNJFOC-20101102316

PATIENT
  Sex: Female
  Weight: 86.18 kg

DRUGS (5)
  1. TOPAMAX [Suspect]
     Indication: CONVULSION
     Dosage: 25 MG PLUS 25 MG
     Route: 048
  2. COUMADIN [Suspect]
     Indication: ANTICOAGULANT THERAPY
     Route: 048
  3. MORPHINE [Suspect]
     Indication: PAIN
     Route: 065
  4. INSULIN [Concomitant]
     Indication: DIABETES MELLITUS
     Route: 058
  5. NITRO PATCH (NITROGLYCERIN) [Concomitant]
     Indication: CARDIAC DISORDER
     Route: 062

REACTIONS (6)
  - CONVULSION [None]
  - FOREIGN BODY [None]
  - INCORRECT ROUTE OF DRUG ADMINISTRATION [None]
  - MYOCARDIAL INFARCTION [None]
  - NECK PAIN [None]
  - WRONG TECHNIQUE IN DRUG USAGE PROCESS [None]
